FAERS Safety Report 10501503 (Version 1)
Quarter: 2014Q4

REPORT INFORMATION
  Report Type: Spontaneous
  Country: US (occurrence: None)
  Receive Date: 20141006
  Receipt Date: 20141006
  Transmission Date: 20150528
  Serious: Yes (Life-Threatening, Hospitalization)
  Sender: FDA-Public Use
  Company Number: None

PATIENT
  Age: 73 Year
  Sex: Female
  Weight: 46.72 kg

DRUGS (1)
  1. TOBI [Suspect]
     Active Substance: TOBRAMYCIN
     Indication: PSEUDOMONAS INFECTION
     Dosage: 300MG  TWICE DAILY  INHALATION
     Route: 055
     Dates: start: 20140531, end: 20140630

REACTIONS (8)
  - Deafness [None]
  - Vocal cord disorder [None]
  - Weight decreased [None]
  - Vagus nerve disorder [None]
  - Toxicity to various agents [None]
  - Dizziness [None]
  - Dehydration [None]
  - Balance disorder [None]

NARRATIVE: CASE EVENT DATE: 20140718
